FAERS Safety Report 24542813 (Version 1)
Quarter: 2024Q4

REPORT INFORMATION
  Report Type: Spontaneous
  Country: US (occurrence: US)
  Receive Date: 20241024
  Receipt Date: 20241024
  Transmission Date: 20250115
  Serious: No
  Sender: GLENMARK
  Company Number: US-GLENMARK PHARMACEUTICALS-2024GMK094715

PATIENT

DRUGS (3)
  1. RYALTRIS [Suspect]
     Active Substance: MOMETASONE FUROATE MONOHYDRATE\OLOPATADINE HYDROCHLORIDE
     Indication: Hypersensitivity
     Dosage: 2 DOSAGE FORM, BID (2 SPRAYS IN EACH NOSTRIL, TWICE DAILY) (FIRST BOTTLE)
     Route: 045
     Dates: start: 2024
  2. RYALTRIS [Suspect]
     Active Substance: MOMETASONE FUROATE MONOHYDRATE\OLOPATADINE HYDROCHLORIDE
     Dosage: 2 DOSAGE FORM, BID (2 SPRAYS IN EACH NOSTRIL, TWICE DAILY) (SECOND BOTTLE)
     Route: 045
     Dates: start: 2024
  3. RYALTRIS [Suspect]
     Active Substance: MOMETASONE FUROATE MONOHYDRATE\OLOPATADINE HYDROCHLORIDE
     Dosage: 2 DOSAGE FORM, BID (2 SPRAYS IN EACH NOSTRIL, TWICE DAILY) (THIRD BOTTLE)
     Route: 045
     Dates: start: 2024

REACTIONS (3)
  - Product use in unapproved indication [Unknown]
  - Drug dose omission by device [Unknown]
  - Device delivery system issue [Unknown]

NARRATIVE: CASE EVENT DATE: 20240101
